FAERS Safety Report 9066288 (Version 2)
Quarter: 2013Q3

REPORT INFORMATION
  Report Type: Spontaneous
  Country: FR (occurrence: FR)
  Receive Date: 20130214
  Receipt Date: 20130706
  Transmission Date: 20140515
  Serious: Yes (Hospitalization)
  Sender: FDA-Public Use
  Company Number: FR-ABBOTT-13P-056-1049532-00

PATIENT
  Age: 6 Year
  Sex: Female

DRUGS (9)
  1. DEPAKINE [Suspect]
     Indication: EPILEPSY
     Route: 048
     Dates: end: 20121219
  2. PARACETAMOL [Suspect]
     Indication: PYREXIA
     Dosage: FEW DAYS
     Route: 048
     Dates: start: 201212, end: 20121219
  3. URBANYL [Suspect]
     Indication: EPILEPSY
     Route: 048
     Dates: end: 20121219
  4. URBANYL [Suspect]
     Route: 048
     Dates: start: 20121222
  5. EPITOMAX [Suspect]
     Indication: EPILEPSY
     Route: 048
     Dates: start: 201205, end: 20121219
  6. EPITOMAX [Suspect]
     Route: 048
     Dates: start: 20121222, end: 20130116
  7. EPITOMAX [Suspect]
     Route: 048
     Dates: start: 20130117
  8. EPITOMAX [Suspect]
     Route: 048
     Dates: end: 201205
  9. DIACOMIT [Suspect]
     Indication: EPILEPSY
     Route: 048
     Dates: end: 20121219

REACTIONS (2)
  - Hepatitis [Recovering/Resolving]
  - Asthenia [Unknown]
